FAERS Safety Report 9579433 (Version 2)
Quarter: 2013Q4

REPORT INFORMATION
  Report Type: Spontaneous
  Country: US (occurrence: US)
  Receive Date: 20131001
  Receipt Date: 20131001
  Transmission Date: 20140711
  Serious: No
  Sender: FDA-Public Use
  Company Number: US-AMGEN-USASP2013013212

PATIENT
  Age: 65 Year
  Sex: Female
  Weight: 76.19 kg

DRUGS (5)
  1. ENBREL [Suspect]
     Indication: PSORIASIS
     Dosage: 50 MG, 2 TIMES/WK
     Route: 058
     Dates: start: 201212
  2. ENBREL [Suspect]
     Indication: PSORIATIC ARTHROPATHY
  3. ESTRACE [Concomitant]
     Dosage: UNK
     Route: 048
  4. SYNTHROID [Concomitant]
     Dosage: UNK
     Route: 048
  5. METHOTREXATE [Concomitant]
     Indication: PSORIASIS
     Dosage: 2.5 MG, QWK
     Dates: start: 20130220

REACTIONS (1)
  - Psoriasis [Recovered/Resolved]
